FAERS Safety Report 4967578-0 (Version None)
Quarter: 2006Q2

REPORT INFORMATION
  Report Type: 
  Country: None (occurrence: None)
  Receive Date: 20060407
  Receipt Date: 20060407
  Transmission Date: 20061013
  Serious: Yes (Life-Threatening, Hospitalization)
  Sender: FDA-Public Use
  Company Number: None

PATIENT
  Age: 60 Year
  Sex: Female

DRUGS (8)
  1. CELLCEPT [Suspect]
     Indication: PANCREATIC CARCINOMA METASTATIC
     Dosage: 2.0 G   BID   PO
     Route: 048
     Dates: start: 20060222, end: 20060327
  2. LOVENOX [Concomitant]
  3. PREVACID [Concomitant]
  4. SYNTHROID [Concomitant]
  5. PERCOCET [Concomitant]
  6. LASIX [Concomitant]
  7. DITROPAN [Concomitant]
  8. AMBIEN [Concomitant]

REACTIONS (7)
  - BILIARY DILATATION [None]
  - BLOOD PRESSURE SYSTOLIC DECREASED [None]
  - LIVER FUNCTION TEST ABNORMAL [None]
  - OBSTRUCTION [None]
  - PANCREATIC CARCINOMA [None]
  - PANCREATIC DISORDER [None]
  - PANCREATIC DUCT DILATATION [None]
